FAERS Safety Report 5345485-1 (Version None)
Quarter: 2007Q2

REPORT INFORMATION
  Report Type: 
  Country: None (occurrence: None)
  Receive Date: 20070601
  Receipt Date: 20070516
  Transmission Date: 20071010
  Serious: Yes (Death)
  Sender: FDA-Public Use
  Company Number: 20073802

PATIENT
  Sex: Male

DRUGS (1)
  1. LIORESAL [Suspect]
     Indication: MUSCLE SPASTICITY
     Dosage: 420 MCG DAILY INTRATHECAL
     Route: 037

REACTIONS (4)
  - ASPIRATION [None]
  - BRONCHIECTASIS [None]
  - CONVULSION [None]
  - RESPIRATORY ARREST [None]
